FAERS Safety Report 17045636 (Version 1)
Quarter: 2019Q4

REPORT INFORMATION
  Report Type: Spontaneous
  Country: CN (occurrence: CN)
  Receive Date: 20191118
  Receipt Date: 20191118
  Transmission Date: 20200122
  Serious: Yes (Disabling)
  Sender: FDA-Public Use
  Company Number: CN-EISAI MEDICAL RESEARCH-EC-2019-065153

PATIENT
  Age: 54 Year
  Sex: Female
  Weight: 51 kg

DRUGS (3)
  1. PHENYTOIN SODIUM. [Suspect]
     Active Substance: PHENYTOIN SODIUM
     Indication: SEIZURE PROPHYLAXIS
     Dosage: FREQUENCY UNKNOWN
     Route: 048
     Dates: start: 20191008, end: 20191028
  2. DONEPEZIL. [Suspect]
     Active Substance: DONEPEZIL
     Indication: SENILE DEMENTIA
     Route: 048
     Dates: start: 20191008, end: 20191028
  3. MECOBALAMIN [Concomitant]
     Active Substance: METHYLCOBALAMIN
     Indication: VITAMIN SUPPLEMENTATION
     Dosage: FREQUENCY UNKNOWN
     Route: 048
     Dates: start: 20191008, end: 20191028

REACTIONS (3)
  - Cognitive disorder [Unknown]
  - Mania [Unknown]
  - Hallucination [Unknown]

NARRATIVE: CASE EVENT DATE: 20191028
